FAERS Safety Report 9420935 (Version 1)
Quarter: 2013Q3

REPORT INFORMATION
  Report Type: Spontaneous
  Country: JP (occurrence: JP)
  Receive Date: 20130725
  Receipt Date: 20130725
  Transmission Date: 20140515
  Serious: Yes (Hospitalization, Other)
  Sender: FDA-Public Use
  Company Number: JP-ABBOTT-12P-087-0975220-00

PATIENT
  Age: 60 Year
  Sex: Female
  Weight: 55 kg

DRUGS (4)
  1. HUMIRA [Suspect]
     Indication: RHEUMATOID ARTHRITIS
     Route: 058
     Dates: start: 20110316, end: 20121109
  2. HUMIRA [Suspect]
     Route: 058
     Dates: start: 20130713, end: 20130713
  3. METHOTREXATE [Concomitant]
     Indication: RHEUMATOID ARTHRITIS
     Route: 048
     Dates: start: 20120228
  4. METHOTREXATE [Concomitant]
     Route: 048
     Dates: start: 20130403

REACTIONS (4)
  - Arthralgia [Recovered/Resolved]
  - Uterine cancer [Unknown]
  - Pyrexia [Recovered/Resolved]
  - Genital haemorrhage [Not Recovered/Not Resolved]
